FAERS Safety Report 13553537 (Version 2)
Quarter: 2017Q3

REPORT INFORMATION
  Report Type: Report from Study
  Country: DE (occurrence: DE)
  Receive Date: 20170517
  Receipt Date: 20170829
  Transmission Date: 20171127
  Serious: Yes (Hospitalization, Other)
  Sender: FDA-Public Use
  Company Number: PHHO2017DE007805

PATIENT
  Age: 41 Year
  Sex: Female
  Weight: 67 kg

DRUGS (3)
  1. LIMPTAR [Concomitant]
     Active Substance: AMINOPHYLLINE\QUININE SULFATE
     Indication: MUSCLE SPASMS
     Dosage: PRN
     Route: 065
  2. AMN107 [Suspect]
     Active Substance: NILOTINIB
     Indication: CHRONIC MYELOID LEUKAEMIA
     Dosage: 300 MG, BID (600 MG/D)
     Route: 048
     Dates: start: 20151031, end: 20170403
  3. VELAFEE [Concomitant]
     Indication: ORAL CONTRACEPTION
     Route: 065

REACTIONS (1)
  - Peripheral artery occlusion [Recovered/Resolved]

NARRATIVE: CASE EVENT DATE: 20170505
